FAERS Safety Report 21254008 (Version 1)
Quarter: 2022Q3

REPORT INFORMATION
  Report Type: Spontaneous
  Country: US (occurrence: None)
  Receive Date: 20220824
  Receipt Date: 20220824
  Transmission Date: 20221027
  Serious: No
  Sender: FDA-Public Use
  Company Number: None

PATIENT
  Age: 68 Year
  Sex: Female

DRUGS (23)
  1. GLATIRAMER [Suspect]
     Active Substance: GLATIRAMER
     Indication: Multiple sclerosis
     Dosage: FREQUENCY : 3 TIMES A WEEK;?
     Route: 058
  2. DALFAMPRIDINE [Suspect]
     Active Substance: DALFAMPRIDINE
     Indication: Osteoarthritis
     Dosage: FREQUENCY : TWICE A DAY;?
     Route: 048
  3. BACLOFEN [Concomitant]
  4. BUPROPION [Concomitant]
     Active Substance: BUPROPION
  5. CARAFATE [Concomitant]
  6. COLACE [Concomitant]
  7. COUMADIN [Concomitant]
  8. DALFAMPRIDINE [Concomitant]
     Active Substance: DALFAMPRIDINE
  9. EFFEXOR XR [Concomitant]
     Active Substance: VENLAFAXINE HYDROCHLORIDE
  10. IRON [Concomitant]
  11. LACTULOSE [Concomitant]
  12. LASIX [Concomitant]
  13. LOVENOX [Concomitant]
     Active Substance: ENOXAPARIN SODIUM
  14. METHADONE [Concomitant]
  15. MORPHINE [Concomitant]
  16. NALOXONE [Concomitant]
  17. NEURONTIN [Concomitant]
     Active Substance: GABAPENTIN
  18. OMEPRAZOLE [Concomitant]
  19. PERCOECT [Concomitant]
  20. POTASSIUM CHLORIDE [Concomitant]
  21. TOPIRAMATE [Concomitant]
  22. XANAX [Concomitant]
  23. ZOFRAN [Concomitant]

REACTIONS (6)
  - Neuropathy peripheral [None]
  - Tremor [None]
  - Tremor [None]
  - Multiple sclerosis [None]
  - Fall [None]
  - Balance disorder [None]
